FAERS Safety Report 7777861-1 (Version None)
Quarter: 2011Q3

REPORT INFORMATION
  Report Type: 
  Country: None (occurrence: None)
  Receive Date: 20110926
  Receipt Date: 20110916
  Transmission Date: 20111222
  Serious: No
  Sender: FDA-Public Use
  Company Number: US-BIOGENIDEC-2011BI035816

PATIENT
  Sex: Female

DRUGS (1)
  1. TYSABRI [Suspect]
     Indication: MULTIPLE SCLEROSIS
     Route: 042
     Dates: start: 20110429, end: 20110625

REACTIONS (5)
  - ANTIBODY TEST POSITIVE [None]
  - CHILLS [None]
  - NAUSEA [None]
  - HYPERSENSITIVITY [None]
  - FEELING HOT [None]
